FAERS Safety Report 9764177 (Version 3)
Quarter: 2014Q1

REPORT INFORMATION
  Report Type: Report from Study
  Country: BR (occurrence: BR)
  Receive Date: 20131216
  Receipt Date: 20140205
  Transmission Date: 20141002
  Serious: Yes (Disabling, Other)
  Sender: FDA-Public Use
  Company Number: PHHY2013BR146895

PATIENT
  Sex: Female
  Weight: 54 kg

DRUGS (7)
  1. DIOVAN AMLO FIX [Suspect]
     Indication: CARDIAC DISORDER
     Dosage: 1 DF (320MG VALS/5MG AMLO), QD (ONCE IN THE MORNING)
     Route: 048
  2. DIOVAN AMLO FIX [Suspect]
     Indication: OFF LABEL USE
  3. AMARYL [Concomitant]
     Indication: BLOOD GLUCOSE
     Dosage: 2 MG, UNK
  4. SIMVASTATIN [Concomitant]
     Dosage: 20 MG, UNK
  5. EUTIROX [Concomitant]
     Indication: THYROID DISORDER
     Dosage: 50 UG, UNK
  6. COMBIRON [Concomitant]
     Indication: ANAEMIA
     Dosage: UNK UKN, UNK
     Dates: start: 2012
  7. ASPIRIN [Concomitant]
     Indication: ANTICOAGULANT THERAPY
     Dosage: UNK UKN, UNK

REACTIONS (9)
  - Hearing impaired [Unknown]
  - Cerumen impaction [Unknown]
  - Oropharyngeal pain [Unknown]
  - Anaemia [Unknown]
  - Blood pressure increased [Unknown]
  - Influenza [Unknown]
  - Fall [Unknown]
  - Venoocclusive disease [Unknown]
  - Peripheral vascular disorder [Unknown]
